FAERS Safety Report 7328126-3 (Version None)
Quarter: 2011Q1

REPORT INFORMATION
  Report Type: 
  Country: None (occurrence: None)
  Receive Date: 20110303
  Receipt Date: 20110218
  Transmission Date: 20110831
  Serious: Yes (Hospitalization, Other)
  Sender: FDA-Public Use
  Company Number: PHHY2010BR48688

PATIENT
  Sex: Female

DRUGS (3)
  1. DIOVAN AMLO FIX [Suspect]
     Dosage: 320/5 MG
     Route: 048
  2. DIOVAN AMLO FIX [Suspect]
     Dosage: 320/5 MG
     Route: 048
  3. DIOVAN AMLO FIX [Suspect]
     Dosage: 320/10 MG
     Route: 048

REACTIONS (5)
  - PERIPHERAL EMBOLISM [None]
  - DISCOMFORT [None]
  - HYPOTENSION [None]
  - THROMBOSIS [None]
  - DIZZINESS [None]
